FAERS Safety Report 5718740-0 (Version None)
Quarter: 2008Q2

REPORT INFORMATION
  Report Type: 
  Country: None (occurrence: None)
  Receive Date: 20080423
  Receipt Date: 20080411
  Transmission Date: 20081010
  Serious: Yes (Congenital Anomaly)
  Sender: FDA-Public Use
  Company Number: FR-GDP-08403799

PATIENT
  Sex: 0

DRUGS (3)
  1. DIFFERIN [Suspect]
     Indication: ACNE
     Dosage: TRANSPLACENTAL
     Route: 064
  2. TOLEXINE (TOLEXINE) (BIORGA) [Suspect]
     Indication: ACNE
     Dosage: TRANSPLACENTAL
     Route: 064
  3. ERYFLUID (ERYFLUID) (PIERRE FABRE) [Suspect]
     Indication: ACNE
     Dosage: TRANSPLACENTAL
     Route: 064

REACTIONS (3)
  - ABORTION INDUCED [None]
  - DRUG EXPOSURE DURING PREGNANCY [None]
  - VACTERL SYNDROME [None]
